FAERS Safety Report 6298308 (Version 4)
Quarter: 2019Q1

REPORT INFORMATION
  Report Type: Spontaneous
  Country: NO (occurrence: NO)
  Receive Date: 20070409
  Receipt Date: 20190210
  Transmission Date: 20190418
  Serious: Yes (Death, Hospitalization, Other)
  Sender: FDA-Public Use
  Company Number: GXKR2007NO02885

PATIENT
  Age: 82 Year
  Sex: Female

DRUGS (6)
  1. SIMVASTATIN. [Suspect]
     Active Substance: SIMVASTATIN
     Indication: HYPERLIPIDAEMIA
     Dosage: 10 MG DAILY
     Route: 065
     Dates: start: 200603
  2. WARFARIN [Interacting]
     Active Substance: WARFARIN
     Indication: DEEP VEIN THROMBOSIS
     Dosage: 2.5 MG, DAILY FOR MORE THAN 2 YEARS
     Route: 065
  3. ALBYL-E [Interacting]
     Active Substance: ASPIRIN\MAGNESIUM OXIDE
     Indication: CEREBRAL INFARCTION
  4. WARFARIN [Interacting]
     Active Substance: WARFARIN
     Indication: PULMONARY EMBOLISM
  5. TIMOLOL. [Concomitant]
     Active Substance: TIMOLOL
     Indication: GLAUCOMA
     Route: 047
  6. ALBYL-E [Interacting]
     Active Substance: ASPIRIN\MAGNESIUM OXIDE
     Indication: TRANSIENT ISCHAEMIC ATTACK
     Dosage: 75 MG, UNK
     Route: 065
     Dates: start: 1998

REACTIONS (12)
  - Blood pressure increased [Fatal]
  - Hemiplegia [Fatal]
  - Contusion [Fatal]
  - Constipation [Fatal]
  - Respiratory arrest [Fatal]
  - Hypertension [Fatal]
  - Drug interaction [Fatal]
  - Facial paralysis [Fatal]
  - Epistaxis [Fatal]
  - International normalised ratio increased [Fatal]
  - Cerebral haemorrhage [Fatal]
  - Loss of consciousness [Fatal]

NARRATIVE: CASE EVENT DATE: 20060420
